FAERS Safety Report 6261774-0 (Version None)
Quarter: 2009Q3

REPORT INFORMATION
  Report Type: 
  Country: None (occurrence: None)
  Receive Date: 20090709
  Receipt Date: 20090629
  Transmission Date: 20100115
  Serious: Yes (Hospitalization, Other)
  Sender: FDA-Public Use
  Company Number: US-ELI_LILLY_AND_COMPANY-US200906007014

PATIENT
  Age: 37 Year
  Sex: Female

DRUGS (4)
  1. CYMBALTA [Suspect]
     Dates: end: 20090101
  2. AVONEX [Concomitant]
     Indication: MULTIPLE SCLEROSIS
     Dosage: 30 UG, WEEKLY (1/W)
     Route: 030
     Dates: start: 20070907, end: 20090501
  3. AVONEX [Concomitant]
     Dosage: 1 D/F, UNK
     Dates: start: 20090101
  4. NEURONTIN [Concomitant]
     Dates: end: 20090101

REACTIONS (7)
  - ANAEMIA [None]
  - BLINDNESS [None]
  - DRUG WITHDRAWAL SYNDROME [None]
  - HYPERHIDROSIS [None]
  - LIVER FUNCTION TEST ABNORMAL [None]
  - LOSS OF CONSCIOUSNESS [None]
  - TINNITUS [None]
